FAERS Safety Report 4907957-0 (Version None)
Quarter: 2006Q1

REPORT INFORMATION
  Report Type: 
  Country: None (occurrence: None)
  Receive Date: 20060210
  Receipt Date: 20060207
  Transmission Date: 20060701
  Serious: Yes (Hospitalization)
  Sender: FDA-Public Use
  Company Number: 2006CG00262

PATIENT
  Age: 84 Year
  Sex: Male

DRUGS (17)
  1. MOPRAL [Suspect]
     Route: 048
     Dates: end: 20060105
  2. COUMADIN [Suspect]
     Route: 048
     Dates: end: 20060102
  3. ZYLORIC [Suspect]
     Route: 048
     Dates: end: 20060102
  4. TAZOCILLINE [Suspect]
     Route: 042
     Dates: start: 20060102, end: 20060103
  5. DEROXAT [Suspect]
     Route: 048
     Dates: end: 20060102
  6. FORLAX [Suspect]
     Route: 048
     Dates: end: 20060102
  7. FONZYLANE [Suspect]
     Dates: end: 20060102
  8. ACETAMINOPHEN [Suspect]
     Dates: end: 20060102
  9. PERFALGAN [Suspect]
     Dates: start: 20060102, end: 20060104
  10. DIGOXIN [Concomitant]
     Dates: end: 20060102
  11. DIGOXIN [Concomitant]
     Dates: start: 20060104
  12. FLUDROCORTISONE [Concomitant]
     Dates: end: 20060102
  13. FLUDROCORTISONE [Concomitant]
     Dates: start: 20060104
  14. TAVANIC [Concomitant]
     Dates: start: 20060102, end: 20060102
  15. AUGMENTIN '125' [Concomitant]
     Dates: start: 20060104, end: 20060104
  16. VENTOLIN [Concomitant]
     Route: 055
     Dates: start: 20060102, end: 20060105
  17. ATROVENT [Concomitant]
     Route: 055
     Dates: start: 20060102, end: 20060105

REACTIONS (7)
  - CONFUSIONAL STATE [None]
  - CYTOLYTIC HEPATITIS [None]
  - HEPATITIS [None]
  - INTERNATIONAL NORMALISED RATIO INCREASED [None]
  - MYOCLONUS [None]
  - RENAL FAILURE ACUTE [None]
  - SOMNOLENCE [None]
